FAERS Safety Report 5877242-1 (Version None)
Quarter: 2008Q3

REPORT INFORMATION
  Report Type: 
  Country: None (occurrence: None)
  Receive Date: 20080910
  Receipt Date: 20080829
  Transmission Date: 20090109
  Serious: Yes (Other)
  Sender: FDA-Public Use
  Company Number: US-PFIZER INC-2008073662

PATIENT
  Age: 56 Year
  Sex: Male

DRUGS (1)
  1. LYRICA [Suspect]
     Indication: POST HERPETIC NEURALGIA
     Dosage: DAILY DOSE:400MG
     Dates: start: 20080701

REACTIONS (3)
  - COORDINATION ABNORMAL [None]
  - FINGER DEFORMITY [None]
  - MUSCLE SPASMS [None]
